FAERS Safety Report 7376023-X (Version None)
Quarter: 2011Q1

REPORT INFORMATION
  Report Type: 
  Country: None (occurrence: None)
  Receive Date: 20110325
  Receipt Date: 20110316
  Transmission Date: 20110831
  Serious: Yes (Other)
  Sender: FDA-Public Use
  Company Number: US-PFIZER INC-HQWYE451315JUN04

PATIENT
  Sex: Female

DRUGS (13)
  1. PERPHENAZINE AND AMITRIPTYLINE HCL [Concomitant]
     Indication: DEPRESSION
     Dosage: UNK
     Dates: start: 19880101
  2. ESTRATEST [Suspect]
     Indication: HORMONE REPLACEMENT THERAPY
     Dosage: UNK
     Dates: start: 19970830, end: 19970929
  3. ESTRATEST [Suspect]
     Dosage: UNK
     Dates: start: 19971101, end: 19971231
  4. ESTRATEST [Suspect]
     Dosage: UNK
     Dates: start: 19980203, end: 19980328
  5. MEDROXYPROGESTERONE ACETATE [Suspect]
     Dosage: 2.5 MG, UNK
     Route: 048
     Dates: start: 19970101, end: 19980101
  6. ESTROGEN NOS [Suspect]
     Dosage: UNK
  7. PREMPRO [Suspect]
     Indication: HORMONE REPLACEMENT THERAPY
     Dosage: 2.5 MG, UNK
     Route: 048
     Dates: start: 19960101, end: 19970101
  8. PREMPRO [Suspect]
     Dosage: UNK
     Route: 048
     Dates: start: 19960829, end: 19970701
  9. PROVERA [Suspect]
     Indication: HORMONE REPLACEMENT THERAPY
     Dosage: 10/5 MG
     Route: 048
     Dates: start: 19860101, end: 19960101
  10. PREMPRO [Suspect]
     Dosage: UNK
     Route: 048
     Dates: start: 19980505, end: 20011205
  11. PREMARIN [Suspect]
     Indication: HORMONE REPLACEMENT THERAPY
     Dosage: 1.25/0.625MG
     Route: 048
     Dates: start: 19860101, end: 19960101
  12. CYCRIN [Suspect]
     Dosage: UNK
  13. PREMPRO [Suspect]
     Dosage: 5 MG, UNK
     Route: 048
     Dates: start: 19980101, end: 20020101

REACTIONS (2)
  - BREAST CANCER [None]
  - CARDIAC FAILURE CONGESTIVE [None]
